FAERS Safety Report 4998472-7 (Version None)
Quarter: 2006Q2

REPORT INFORMATION
  Report Type: 
  Country: None (occurrence: None)
  Receive Date: 20060508
  Receipt Date: 20060427
  Transmission Date: 20061013
  Serious: Yes (Other)
  Sender: FDA-Public Use
  Company Number: 2006056250

PATIENT
  Age: 66 Year
  Sex: Male

DRUGS (5)
  1. NORVASC [Suspect]
     Indication: HYPERTENSION
     Dosage: 5 MG (DAILY) ORAL
     Route: 048
     Dates: start: 20050907
  2. TICLOPIDINE HCL [Suspect]
     Indication: POSTOPERATIVE CARE
     Dosage: 200 MG (DAILY) ORAL
     Route: 048
     Dates: start: 20050913
  3. MICARDIS [Suspect]
     Indication: HYPERTENSION
     Dosage: 40 MG (DAILY) ORAL
     Route: 048
     Dates: start: 20050907
  4. LAFUTIDINE                (LAFUTIDINE) [Concomitant]
  5. WARFARIN SODIUM [Concomitant]

REACTIONS (4)
  - DEHYDRATION [None]
  - DIARRHOEA [None]
  - FALL [None]
  - SYNCOPE [None]
